FAERS Safety Report 4329431-5 (Version None)
Quarter: 2004Q1

REPORT INFORMATION
  Report Type: 
  Country: None (occurrence: None)
  Receive Date: 20040325
  Receipt Date: 20040217
  Transmission Date: 20041129
  Serious: No
  Sender: FDA-Public Use
  Company Number: USA-2004-0013368

PATIENT
  Sex: Female

DRUGS (1)
  1. SPECTRACEF [Suspect]
     Indication: UPPER RESPIRATORY TRACT INFECTION
     Dosage: MG,

REACTIONS (1)
  - CLOSTRIDIUM COLITIS [None]
